FAERS Safety Report 10686114 (Version 1)
Quarter: 2014Q4

REPORT INFORMATION
  Report Type: Spontaneous
  Country: US (occurrence: US)
  Receive Date: 20141231
  Receipt Date: 20141231
  Transmission Date: 20150529
  Serious: No
  Sender: FDA-Public Use
  Company Number: US-BRISTOL-MYERS SQUIBB COMPANY-BMS-2014-000749

PATIENT
  Sex: Male

DRUGS (1)
  1. ORENCIA [Suspect]
     Active Substance: ABATACEPT
     Indication: RHEUMATOID ARTHRITIS
     Dosage: 125 MG, QWK.LAST DOSE 20-NOV-2014, 27-NOV-2014 AND 04-DEC-2014 .4 DOSES
     Route: 058
     Dates: start: 20141113

REACTIONS (5)
  - Injection site swelling [Unknown]
  - Arthralgia [Unknown]
  - Cough [Unknown]
  - Lung disorder [Unknown]
  - Pain in extremity [Unknown]

NARRATIVE: CASE EVENT DATE: 20141113
